FAERS Safety Report 12790843 (Version 1)
Quarter: 2016Q3

REPORT INFORMATION
  Report Type: Spontaneous
  Country: US (occurrence: US)
  Receive Date: 20160929
  Receipt Date: 20160929
  Transmission Date: 20161109
  Serious: No
  Sender: FDA-Public Use
  Company Number: US-ASTRAZENECA-2016SF00247

PATIENT
  Age: 18280 Day
  Sex: Female
  Weight: 117 kg

DRUGS (3)
  1. BYDUREON [Suspect]
     Active Substance: EXENATIDE
     Indication: TYPE 2 DIABETES MELLITUS
     Dosage: 2.0MG UNKNOWN
     Route: 058
     Dates: start: 20160916
  2. METFORMIN [Concomitant]
     Active Substance: METFORMIN HYDROCHLORIDE
     Indication: DIABETES MELLITUS
     Dates: start: 2006
  3. LANTUS [Concomitant]
     Active Substance: INSULIN GLARGINE
     Indication: DIABETES MELLITUS
     Dosage: 34 UNITS IN MORNING AND 40 UNITS AT NIGHT
     Dates: start: 2006

REACTIONS (2)
  - Injection site mass [Unknown]
  - Product quality issue [Unknown]

NARRATIVE: CASE EVENT DATE: 20160916
